FAERS Safety Report 8528196 (Version 2)
Quarter: 2013Q2

REPORT INFORMATION
  Report Type: Spontaneous
  Country: CA (occurrence: CA)
  Receive Date: 20120424
  Receipt Date: 20130604
  Transmission Date: 20140414
  Serious: Yes (Life-Threatening, Hospitalization, Other)
  Sender: FDA-Public Use
  Company Number: CA-ELI_LILLY_AND_COMPANY-CA201204003777

PATIENT
  Age: 55 Year
  Sex: Female
  Weight: 83.45 kg

DRUGS (8)
  1. CYMBALTA [Suspect]
     Indication: DEPRESSION
     Dosage: 60 MG, QOD
     Dates: start: 20110901, end: 20110907
  2. CYMBALTA [Suspect]
     Dosage: 60 MG, QD
     Dates: start: 20110908, end: 20110924
  3. CLONAZEPAM [Concomitant]
     Dosage: 1 MG, BID
  4. HYDROCHLOROTHIAZIDE [Concomitant]
     Dosage: 25 MG, QD
  5. MAGNESIUM [Concomitant]
     Dosage: 1000 MG, EACH EVENING
  6. MICARDIS [Concomitant]
     Dosage: 80 MG, QD
  7. PANTOPRAZOLE [Concomitant]
     Dosage: 40 MG, UNK
  8. THYROID [Concomitant]
     Dosage: 30 MG, QD

REACTIONS (16)
  - Condition aggravated [Recovered/Resolved]
  - Chest discomfort [Recovered/Resolved]
  - Depression [Recovered/Resolved]
  - Hypotension [Recovered/Resolved]
  - Paranoia [Recovered/Resolved]
  - Radial pulse abnormal [Recovered/Resolved]
  - Drug ineffective [Recovered/Resolved]
  - Abdominal pain upper [Recovered/Resolved]
  - Diarrhoea [Recovered/Resolved]
  - Dysphagia [Recovered/Resolved]
  - Fatigue [Recovered/Resolved]
  - Headache [Recovered/Resolved]
  - Oesophageal spasm [Recovered/Resolved]
  - Paraesthesia oral [Recovered/Resolved]
  - Vomiting [Recovered/Resolved]
  - Hyponatraemic syndrome [Recovered/Resolved]
